FAERS Safety Report 9708069 (Version 2)
Quarter: 2013Q4

REPORT INFORMATION
  Report Type: Report from Study
  Country: BE (occurrence: BE)
  Receive Date: 20131125
  Receipt Date: 20131220
  Transmission Date: 20140711
  Serious: Yes (Hospitalization)
  Sender: FDA-Public Use
  Company Number: BE-ABBVIE-13P-013-1170402-00

PATIENT
  Age: 49 Year
  Sex: Female
  Weight: 78 kg

DRUGS (19)
  1. HUMIRA [Suspect]
     Indication: UVEITIS
     Route: 058
     Dates: start: 20130228, end: 20131107
  2. HUMIRA [Suspect]
     Route: 058
     Dates: start: 20131129
  3. AMLODIPINE [Concomitant]
     Indication: HYPERTENSION
     Route: 048
  4. ASAFLOW [Concomitant]
     Indication: CARDIOVASCULAR EVENT PROPHYLAXIS
     Route: 048
  5. AZARGA [Concomitant]
     Indication: OCULAR HYPERTENSION
     Dosage: ODS
     Route: 050
     Dates: start: 20090917
  6. AZARGA [Concomitant]
     Indication: PROPHYLAXIS
  7. CRESTOR [Concomitant]
     Indication: HYPERCHOLESTEROLAEMIA
     Route: 048
     Dates: start: 20110216
  8. DAFALGAN KINDER [Concomitant]
     Indication: ARTHRALGIA
     Route: 048
     Dates: start: 201204
  9. FOLIC ACID [Concomitant]
     Indication: RESTLESS LEGS SYNDROME
     Route: 048
  10. HYABAK [Concomitant]
     Indication: DRY EYE
     Route: 061
     Dates: start: 20120426
  11. IMURAN [Concomitant]
     Indication: PRODUCT USED FOR UNKNOWN INDICATION
     Route: 048
  12. LIPANTHYL [Concomitant]
     Indication: HYPERCHOLESTEROLAEMIA
     Route: 048
  13. METFORMAX [Concomitant]
     Indication: INSULIN RESISTANCE
     Route: 048
     Dates: start: 20121130
  14. MOTILIUM [Concomitant]
     Indication: HERNIA
     Route: 048
     Dates: start: 20100416
  15. NUROFEN [Concomitant]
     Indication: HEADACHE
     Route: 048
  16. RHINATHIOL ANTIRHINITIS [Concomitant]
     Indication: NASAL CONGESTION
     Dosage: APPLICATION
     Route: 045
     Dates: start: 200608
  17. SERETIDE [Concomitant]
     Indication: CHRONIC OBSTRUCTIVE PULMONARY DISEASE
     Dosage: APPLICATION 50/250
     Route: 055
     Dates: start: 20121220
  18. STEOVIT D3 [Concomitant]
     Indication: OSTEOPENIA
     Dosage: 1000/880
     Route: 048
  19. VOLTAPATCH [Concomitant]
     Indication: ARTHRALGIA
     Dosage: TISSUGEL PATCH
     Route: 062
     Dates: start: 20120717

REACTIONS (1)
  - Retinal detachment [Not Recovered/Not Resolved]
